FAERS Safety Report 15389135 (Version 1)
Quarter: 2018Q3

REPORT INFORMATION
  Report Type: Spontaneous
  Country: US (occurrence: US)
  Receive Date: 20180917
  Receipt Date: 20180917
  Transmission Date: 20181010
  Serious: No
  Sender: FDA-Public Use
  Company Number: US-HORIZON-DUE-0244-2018

PATIENT
  Age: 43 Year
  Sex: Male

DRUGS (1)
  1. DUEXIS [Suspect]
     Active Substance: FAMOTIDINE\IBUPROFEN
     Indication: INTERVERTEBRAL DISC PROTRUSION
     Dosage: 1 TABLET TID, TOOK ONLY ONE TABLET
     Dates: start: 201806, end: 201806

REACTIONS (2)
  - Headache [Recovered/Resolved]
  - Off label use [Recovered/Resolved]

NARRATIVE: CASE EVENT DATE: 201806
